FAERS Safety Report 11842573 (Version 1)
Quarter: 2015Q4

REPORT INFORMATION
  Report Type: Spontaneous
  Country: US (occurrence: US)
  Receive Date: 20151216
  Receipt Date: 20151216
  Transmission Date: 20160305
  Serious: Yes (Other)
  Sender: FDA-Public Use
  Company Number: US-BAYER-2015-487692

PATIENT
  Age: 35 Year
  Sex: Female
  Weight: 72.56 kg

DRUGS (2)
  1. DR. SCHOLLS CLEAR AWAY WART REMOVER ULTRA THIN DISCS [Suspect]
     Active Substance: SALICYLIC ACID
     Indication: SKIN PAPILLOMA
     Dosage: 1 DF, QOD
     Route: 061
     Dates: start: 20151207, end: 20151211
  2. SPRINTEC [Concomitant]
     Active Substance: ETHINYL ESTRADIOL\NORGESTIMATE

REACTIONS (4)
  - Skin papilloma [Not Recovered/Not Resolved]
  - Skin haemorrhage [Not Recovered/Not Resolved]
  - Application site fissure [None]
  - Application site haemorrhage [None]

NARRATIVE: CASE EVENT DATE: 20151210
